FAERS Safety Report 8788883 (Version 2)
Quarter: 2012Q4

REPORT INFORMATION
  Report Type: 
  Country: US (occurrence: US)
  Receive Date: 20120917
  Receipt Date: 20121128
  Transmission Date: 20130627
  Serious: No
  Sender: FDA-Public Use
  Company Number: US-PFIZER INC-2012228459

PATIENT
  Age: 51 Year
  Sex: Female
  Weight: 69.84 kg

DRUGS (5)
  1. CHANTIX [Suspect]
     Indication: SMOKING CESSATION THERAPY
     Dosage: 0.5 mg, 2x/day
     Route: 048
     Dates: start: 20120913
  2. DILANTIN [Concomitant]
     Dosage: 100 mg, 1x/day
     Route: 048
  3. LISINOPRIL [Concomitant]
     Indication: BLOOD PRESSURE HIGH
     Dosage: 20 mg, 1x/day
     Route: 048
  4. ASPIRIN [Concomitant]
     Dosage: UNK
  5. AMLODIPINE [Concomitant]
     Dosage: 10 mg, 1x/day
     Route: 048

REACTIONS (1)
  - Feeling abnormal [Recovered/Resolved]
